FAERS Safety Report 8450108-9 (Version None)
Quarter: 2012Q2

REPORT INFORMATION
  Report Type: 
  Country: None (occurrence: None)
  Receive Date: 20120620
  Receipt Date: 20120608
  Transmission Date: 20120825
  Serious: Yes (Other)
  Sender: FDA-Public Use
  Company Number: US-US-EMD SERONO, INC.-7138408

PATIENT
  Sex: Male

DRUGS (1)
  1. REBIF [Suspect]
     Indication: MULTIPLE SCLEROSIS
     Route: 058
     Dates: start: 20120426

REACTIONS (5)
  - INFLAMMATION [None]
  - BALANCE DISORDER [None]
  - OCULAR HYPERAEMIA [None]
  - GAIT DISTURBANCE [None]
  - SEPSIS [None]
